FAERS Safety Report 25182769 (Version 1)
Quarter: 2025Q2

REPORT INFORMATION
  Report Type: Spontaneous
  Country: US (occurrence: US)
  Receive Date: 20250410
  Receipt Date: 20250410
  Transmission Date: 20250717
  Serious: No
  Sender: OPTINOSE INC
  Company Number: US-OptiNose US, Inc-2024OPT000107

PATIENT
  Age: 66 Year
  Sex: Female

DRUGS (5)
  1. XHANCE [Suspect]
     Active Substance: FLUTICASONE PROPIONATE
     Indication: Product used for unknown indication
     Route: 045
     Dates: start: 20240513
  2. ZYRTEC [Concomitant]
     Active Substance: CETIRIZINE HYDROCHLORIDE
     Indication: Product used for unknown indication
  3. PRILOSEC [Concomitant]
     Active Substance: OMEPRAZOLE MAGNESIUM
     Indication: Product used for unknown indication
  4. SINGULAIR [Concomitant]
     Active Substance: MONTELUKAST SODIUM
     Indication: Product used for unknown indication
  5. AZELASTINE FLUTICASONE [Concomitant]
     Indication: Product used for unknown indication

REACTIONS (2)
  - Therapy interrupted [Unknown]
  - Headache [Unknown]
